FAERS Safety Report 7132006-6 (Version None)
Quarter: 2010Q4

REPORT INFORMATION
  Report Type: 
  Country: None (occurrence: None)
  Receive Date: 20101202
  Receipt Date: 20101124
  Transmission Date: 20110411
  Serious: Yes (Life-Threatening)
  Sender: FDA-Public Use
  Company Number: UG-ABBOTT-10P-165-0658811-00

PATIENT
  Age: 5 Year
  Sex: Male

DRUGS (7)
  1. ALUVIA TABLETS [Suspect]
     Indication: MALARIA PROPHYLAXIS
     Route: 048
     Dates: start: 20100317
  2. ALUVIA TABLETS [Suspect]
     Indication: HIV INFECTION
  3. AZT [Concomitant]
     Indication: MALARIA PROPHYLAXIS
     Dates: start: 20100317, end: 20100721
  4. AZT [Concomitant]
     Indication: HIV INFECTION
     Dates: start: 20100930, end: 20101027
  5. LAMIVUDINE (EPIVIR HBV) [Concomitant]
     Indication: MALARIA PROPHYLAXIS
     Dates: start: 20100317
  6. LAMIVUDINE (EPIVIR HBV) [Concomitant]
     Indication: HIV INFECTION
  7. COTRIMOXAZOLE [Concomitant]
     Indication: PRODUCT USED FOR UNKNOWN INDICATION

REACTIONS (2)
  - MALARIA [None]
  - NEUTROPENIA [None]
